FAERS Safety Report 23130670 (Version 1)
Quarter: 2023Q4

REPORT INFORMATION
  Report Type: Spontaneous
  Country: AT (occurrence: AT)
  Receive Date: 20231031
  Receipt Date: 20231031
  Transmission Date: 20240109
  Serious: Yes (Other)
  Sender: FDA-Public Use
  Company Number: None

PATIENT
  Age: 56 Year
  Sex: Female

DRUGS (1)
  1. ALEVE [Suspect]
     Active Substance: NAPROXEN SODIUM
     Indication: Pain
     Route: 048
     Dates: start: 202306

REACTIONS (3)
  - Type IV hypersensitivity reaction [Unknown]
  - Penile blister [Unknown]
  - Penile erosion [Unknown]

NARRATIVE: CASE EVENT DATE: 20230601
